FAERS Safety Report 13575941 (Version 1)
Quarter: 2017Q2

REPORT INFORMATION
  Report Type: Spontaneous
  Country: US (occurrence: US)
  Receive Date: 20170524
  Receipt Date: 20170524
  Transmission Date: 20170830
  Serious: No
  Sender: FDA-Public Use
  Company Number: US-PFIZER INC-2017216873

PATIENT
  Sex: Female

DRUGS (3)
  1. VERAPAMIL HCL [Suspect]
     Active Substance: VERAPAMIL HYDROCHLORIDE
  2. TORADOL [Suspect]
     Active Substance: KETOROLAC TROMETHAMINE
  3. DAYPRO [Suspect]
     Active Substance: OXAPROZIN

REACTIONS (2)
  - Alopecia [Unknown]
  - Drug hypersensitivity [Unknown]
